FAERS Safety Report 14248002 (Version 3)
Quarter: 2018Q2

REPORT INFORMATION
  Report Type: Spontaneous
  Country: US (occurrence: US)
  Receive Date: 20171204
  Receipt Date: 20180605
  Transmission Date: 20180711
  Serious: No
  Sender: FDA-Public Use
  Company Number: US-GLAXOSMITHKLINE-US2017GSK184381

PATIENT
  Age: 60 Year
  Sex: Female

DRUGS (2)
  1. FLOLAN [Suspect]
     Active Substance: EPOPROSTENOL SODIUM
     Indication: PULMONARY ARTERIAL HYPERTENSION
     Dosage: 49 NG/KG/MIN, CO
     Route: 042
     Dates: start: 20171005
  2. FLOLAN DILUENT PH 12 SOLUTION FOR INJECTION [Suspect]
     Active Substance: GLYCINE\MANNITOL\SODIUM CHLORIDE
     Indication: PULMONARY ARTERIAL HYPERTENSION
     Dosage: UNK

REACTIONS (7)
  - Nasopharyngitis [Unknown]
  - Fatigue [Unknown]
  - Myalgia [Unknown]
  - Depressed mood [Unknown]
  - Apathy [Unknown]
  - Oral surgery [Unknown]
  - Lethargy [Unknown]

NARRATIVE: CASE EVENT DATE: 20171128
